FAERS Safety Report 4952905-0 (Version None)
Quarter: 2006Q1

REPORT INFORMATION
  Report Type: 
  Country: None (occurrence: None)
  Receive Date: 20060324
  Receipt Date: 20060310
  Transmission Date: 20060701
  Serious: Yes (Hospitalization)
  Sender: FDA-Public Use
  Company Number: FR-JNJFOC-20060302814

PATIENT
  Sex: Female

DRUGS (2)
  1. REMICADE [Suspect]
     Route: 042
  2. METHOTREXATE [Concomitant]
     Route: 065

REACTIONS (5)
  - GRANULOMA [None]
  - LEUKOPENIA [None]
  - LIVER DISORDER [None]
  - NEUTROPENIA [None]
  - PHLEBITIS [None]
